FAERS Safety Report 5859612-0 (Version None)
Quarter: 2008Q3

REPORT INFORMATION
  Report Type: 
  Country: None (occurrence: None)
  Receive Date: 20080827
  Receipt Date: 20080812
  Transmission Date: 20090109
  Serious: Yes (Other)
  Sender: FDA-Public Use
  Company Number: US-BAYER-200813401BCC

PATIENT
  Age: 22 Year
  Sex: Female
  Weight: 56 kg

DRUGS (4)
  1. MIDOL MENSTRUAL COMPLETE MAXIMUM STRENGTH CAPLETS [Suspect]
     Indication: SELF INJURIOUS BEHAVIOUR
     Route: 048
     Dates: start: 20080812
  2. PAXIL [Concomitant]
  3. KLONOPIN [Concomitant]
  4. CELEXA [Concomitant]

REACTIONS (2)
  - HEART RATE INCREASED [None]
  - VOMITING [None]
